FAERS Safety Report 25037042 (Version 1)
Quarter: 2025Q1

REPORT INFORMATION
  Report Type: Spontaneous
  Country: US (occurrence: US)
  Receive Date: 20250304
  Receipt Date: 20250304
  Transmission Date: 20250409
  Serious: No
  Sender: MYLAN
  Company Number: US-MYLANLABS-2025M1016764

PATIENT

DRUGS (1)
  1. LEVOTHYROXINE SODIUM [Suspect]
     Active Substance: LEVOTHYROXINE SODIUM
     Indication: Product used for unknown indication
     Dosage: 75 MICROGRAM, QD (ONCE DAILY)

REACTIONS (7)
  - Thyroid hormones increased [Unknown]
  - Heart rate increased [Unknown]
  - Palpitations [Unknown]
  - Tachycardia [Unknown]
  - Blood pressure increased [Unknown]
  - Recalled product administered [Unknown]
  - Recalled product [Unknown]

NARRATIVE: CASE EVENT DATE: 20250101
